FAERS Safety Report 14561915 (Version 2)
Quarter: 2018Q1

REPORT INFORMATION
  Report Type: Report from Study
  Country: FR (occurrence: FR)
  Receive Date: 20180222
  Receipt Date: 20180315
  Transmission Date: 20180509
  Serious: Yes (Other)
  Sender: FDA-Public Use
  Company Number: FR-JAZZ-2018-FR-003245

PATIENT
  Age: 37 Year
  Sex: Female

DRUGS (4)
  1. MAGNESIUM [Suspect]
     Active Substance: MAGNESIUM
     Indication: PRODUCT USED FOR UNKNOWN INDICATION
  2. XYREM [Suspect]
     Active Substance: SODIUM OXYBATE
     Indication: HYPERSOMNIA
     Dosage: 4.5 G, BID
     Route: 048
     Dates: start: 201711
  3. MOVICOL PLAIN [Suspect]
     Active Substance: POLYETHYLENE GLYCOL 3350\POTASSIUM CHLORIDE\SODIUM BICARBONATE\SODIUM CHLORIDE
     Indication: CONSTIPATION
  4. SEROPLEX [Concomitant]
     Active Substance: ESCITALOPRAM OXALATE

REACTIONS (11)
  - Amnesia [Not Recovered/Not Resolved]
  - Blood pressure increased [Unknown]
  - Heart rate increased [Unknown]
  - Migraine [Not Recovered/Not Resolved]
  - Skin odour abnormal [Not Recovered/Not Resolved]
  - Drug ineffective [Unknown]
  - Constipation [Unknown]
  - Disturbance in attention [Not Recovered/Not Resolved]
  - Night sweats [Not Recovered/Not Resolved]
  - Depression [Unknown]
  - Nausea [Not Recovered/Not Resolved]

NARRATIVE: CASE EVENT DATE: 201711
